FAERS Safety Report 15131279 (Version 2)
Quarter: 2021Q4

REPORT INFORMATION
  Report Type: Report from Study
  Country: FR (occurrence: FR)
  Receive Date: 20180711
  Receipt Date: 20211020
  Transmission Date: 20220303
  Serious: Yes (Hospitalization, Other)
  Sender: FDA-Public Use
  Company Number: FR-SHIRE-FR201812268

PATIENT
  Sex: Female

DRUGS (8)
  1. METHOTREXATE [Suspect]
     Active Substance: METHOTREXATE
     Indication: Product used for unknown indication
     Dosage: 12 MILLIGRAM
     Route: 037
     Dates: start: 20171220, end: 20180214
  2. METHOTREXATE [Suspect]
     Active Substance: METHOTREXATE
     Indication: Acute lymphocytic leukaemia
     Dosage: 17.5 MILLIGRAM (17.5 MG, UNK)
     Route: 048
     Dates: start: 20171226, end: 20180306
  3. MERCAPTOPURINE [Interacting]
     Active Substance: MERCAPTOPURINE
     Indication: Acute lymphocytic leukaemia
     Dosage: 30 MILLIGRAM
     Route: 048
     Dates: start: 20171219, end: 20180227
  4. VINCRISTINE [Interacting]
     Active Substance: VINCRISTINE
     Indication: Acute lymphocytic leukaemia
     Dosage: 1 MILLIGRAM
     Route: 042
     Dates: start: 20171219, end: 20180220
  5. DEXAMETHASONE [Interacting]
     Active Substance: DEXAMETHASONE
     Indication: Acute lymphocytic leukaemia
     Dosage: 4 MILLIGRAM
     Route: 048
     Dates: start: 20171219, end: 20180217
  6. PEGASPARGASE [Interacting]
     Active Substance: PEGASPARGASE
     Indication: Acute lymphocytic leukaemia
     Dosage: 1700 INTERNATIONAL UNIT (1700 IU, UNK)
     Route: 042
     Dates: start: 20171226, end: 20180220
  7. AMLODIPINE [Concomitant]
     Active Substance: AMLODIPINE BESYLATE
     Indication: Hypertension
     Dosage: UNK
  8. BACTRIM [Concomitant]
     Active Substance: SULFAMETHOXAZOLE\TRIMETHOPRIM
     Indication: Hyperthermia malignant
     Dosage: UNK

REACTIONS (2)
  - Atrial thrombosis [Not Recovered/Not Resolved]
  - Potentiating drug interaction [Recovering/Resolving]

NARRATIVE: CASE EVENT DATE: 20180309
